FAERS Safety Report 8302783-7 (Version None)
Quarter: 2012Q2

REPORT INFORMATION
  Report Type: 
  Country: None (occurrence: None)
  Receive Date: 20120420
  Receipt Date: 20110720
  Transmission Date: 20120825
  Serious: No
  Sender: FDA-Public Use
  Company Number: US-PFIZER INC-K201100845

PATIENT

DRUGS (1)
  1. AVINZA [Suspect]
     Dosage: 30 MG
     Route: 065

REACTIONS (1)
  - DRUG DIVERSION [None]
